FAERS Safety Report 5300167-7 (Version None)
Quarter: 2007Q2

REPORT INFORMATION
  Report Type: 
  Country: None (occurrence: None)
  Receive Date: 20070411
  Receipt Date: 20070326
  Transmission Date: 20071010
  Serious: Yes (Other)
  Sender: FDA-Public Use
  Company Number: 2007000541

PATIENT
  Age: 80 Year
  Sex: Male
  Weight: 78.9 kg

DRUGS (9)
  1. ERLOTINIB(TABLET) [Suspect]
     Indication: NON-SMALL CELL LUNG CANCER
     Dosage: 100 MG QD, ORAL
     Route: 048
     Dates: start: 20070206
  2. GEMCITABINE [Suspect]
     Dosage: 1960 MG (D1, 8, 22, 29), INTRAVENOUS
     Route: 042
  3. GLIMEPIRIDE [Concomitant]
  4. GLYBURIDE [Concomitant]
  5. SIMVASTATIN [Concomitant]
  6. VICODIN [Concomitant]
  7. LYRICA [Concomitant]
  8. PEPCID AC [Concomitant]
  9. SENOKOT [Concomitant]

REACTIONS (3)
  - PAIN IN EXTREMITY [None]
  - PULMONARY EMBOLISM [None]
  - SINUS TACHYCARDIA [None]
